FAERS Safety Report 4332163-0 (Version None)
Quarter: 2004Q1

REPORT INFORMATION
  Report Type: 
  Country: None (occurrence: None)
  Receive Date: 20040331
  Receipt Date: 20040312
  Transmission Date: 20041129
  Serious: Yes (Death, Other)
  Sender: FDA-Public Use
  Company Number: EWC040338435

PATIENT
  Age: 65 Year
  Sex: Female

DRUGS (6)
  1. OLANZAPINE [Suspect]
     Indication: ANXIETY
     Dosage: 2.5 MG/1 DAY
     Route: 048
     Dates: start: 20030501
  2. OLANZAPINE [Suspect]
     Indication: RESTLESSNESS
     Dosage: 2.5 MG/1 DAY
     Route: 048
     Dates: start: 20030501
  3. FLUX            (SODIUM FLUORIDE) [Concomitant]
  4. SIFROL        (PRAMIPEXOLE DIHYDROCHLORIDE) [Concomitant]
  5. LISINOPRIL [Concomitant]
  6. EPIXIAN [Concomitant]

REACTIONS (3)
  - CIRCULATORY COLLAPSE [None]
  - LOSS OF CONSCIOUSNESS [None]
  - NERVOUS SYSTEM DISORDER [None]
